FAERS Safety Report 16214388 (Version 1)
Quarter: 2019Q2

REPORT INFORMATION
  Report Type: Spontaneous
  Country: US (occurrence: US)
  Receive Date: 20190418
  Receipt Date: 20190418
  Transmission Date: 20190711
  Serious: No
  Sender: FDA-Public Use
  Company Number: US-TARO-2019TAR00134

PATIENT
  Age: 25 Year
  Sex: Male
  Weight: 97.51 kg

DRUGS (1)
  1. CLOBETASOL PROPIONATE FOAM 0.05% [Suspect]
     Active Substance: CLOBETASOL PROPIONATE
     Indication: UNEVALUABLE EVENT
     Dosage: UNK, 2X/DAY FOR TWO WEEKS AND AS NEEDED AFTER THAT
     Route: 061
     Dates: start: 201902

REACTIONS (2)
  - Drug ineffective [Not Recovered/Not Resolved]
  - Product quality issue [Not Recovered/Not Resolved]

NARRATIVE: CASE EVENT DATE: 201902
